FAERS Safety Report 20404619 (Version 1)
Quarter: 2022Q1

REPORT INFORMATION
  Report Type: Report from Study
  Country: CN (occurrence: CN)
  Receive Date: 20220131
  Receipt Date: 20220131
  Transmission Date: 20220423
  Serious: Yes (Other)
  Sender: FDA-Public Use
  Company Number: CN-KYOWAKIRIN-2022AKK000767

PATIENT
  Age: 66 Year
  Sex: Male

DRUGS (1)
  1. CINACALCET HYDROCHLORIDE [Suspect]
     Active Substance: CINACALCET HYDROCHLORIDE
     Indication: Hyperparathyroidism secondary
     Dosage: UNK
     Route: 048

REACTIONS (43)
  - Leukopenia [Recovered/Resolved]
  - Renal haemorrhage [Not Recovered/Not Resolved]
  - Hepatic cirrhosis [Not Recovered/Not Resolved]
  - Renal atrophy [Not Recovered/Not Resolved]
  - Atrial fibrillation [Recovered/Resolved]
  - Atrioventricular block [Recovered/Resolved]
  - Hypocalcaemia [Recovered/Resolved]
  - Hypocalcaemia [Recovered/Resolved]
  - Hypocalcaemia [Recovered/Resolved]
  - Hypocalcaemia [Recovered/Resolved]
  - Hypocalcaemia [Recovered/Resolved]
  - Hypocalcaemia [Recovered/Resolved]
  - Hypoproteinaemia [Recovered/Resolved]
  - Hypoproteinaemia [Recovered/Resolved]
  - Hyponatraemia [Recovered/Resolved]
  - Hyponatraemia [Recovered/Resolved]
  - Hypoalbuminaemia [Recovered/Resolved]
  - Hypoproteinaemia [Recovered/Resolved]
  - Hyponatraemia [Recovered/Resolved]
  - Hypochloraemia [Recovered/Resolved]
  - Hypoalbuminaemia [Recovered/Resolved]
  - Hypoglycaemia [Recovered/Resolved]
  - Hypochloraemia [Recovered/Resolved]
  - Hypoalbuminaemia [Recovered/Resolved]
  - Hyponatraemia [Recovered/Resolved]
  - Hypoalbuminaemia [Recovered/Resolved]
  - Hypermagnesaemia [Not Recovered/Not Resolved]
  - Hypoalbuminaemia [Recovered/Resolved]
  - Benign pancreatic neoplasm [Not Recovered/Not Resolved]
  - Jugular vein occlusion [Not Recovered/Not Resolved]
  - Jugular vein thrombosis [Not Recovered/Not Resolved]
  - Hepatic cyst [Not Recovered/Not Resolved]
  - Splenomegaly [Not Recovered/Not Resolved]
  - Pancreatic cyst [Not Recovered/Not Resolved]
  - Hypoglycaemia [Recovered/Resolved]
  - Atrioventricular block first degree [Recovered/Resolved]
  - Renal cyst [Not Recovered/Not Resolved]
  - Iron overload [Not Recovered/Not Resolved]
  - Goitre [Not Recovered/Not Resolved]
  - Peripheral swelling [Recovered/Resolved]
  - Hypercalcaemia [Recovered/Resolved]
  - Hypercalcaemia [Recovered/Resolved]
  - Myalgia [Recovered/Resolved]

NARRATIVE: CASE EVENT DATE: 20200616
